FAERS Safety Report 4902000-1 (Version None)
Quarter: 2006Q1

REPORT INFORMATION
  Report Type: 
  Country: None (occurrence: None)
  Receive Date: 20060206
  Receipt Date: 20060125
  Transmission Date: 20060701
  Serious: Yes (Other)
  Sender: FDA-Public Use
  Company Number: GB-SANOFI-SYNTHELABO-A01200600707

PATIENT
  Age: 68 Year
  Weight: 86 kg

DRUGS (5)
  1. ZOLPIDEM [Suspect]
     Indication: INSOMNIA
     Dosage: 5 MG
     Route: 048
     Dates: start: 20050711, end: 20051121
  2. PRIADEL [Concomitant]
     Indication: BIPOLAR DISORDER
     Dosage: 100 MG
     Route: 065
  3. LORAZEPAM [Concomitant]
     Indication: INSOMNIA
     Dosage: 2 MG
     Route: 065
  4. DOSULEPIN [Concomitant]
     Indication: INSOMNIA
     Dosage: 25 MG
     Route: 065
  5. ATENOLOL [Concomitant]
     Dosage: UNK
     Route: 065

REACTIONS (1)
  - MUSCLE SPASMS [None]
